FAERS Safety Report 17816900 (Version 1)
Quarter: 2020Q2

REPORT INFORMATION
  Report Type: Spontaneous
  Country: US (occurrence: US)
  Receive Date: 20200522
  Receipt Date: 20200522
  Transmission Date: 20200714
  Serious: No
  Sender: FDA-Public Use
  Company Number: US-FDC LIMITED-2020RIS00168

PATIENT
  Age: 79 Year
  Sex: Male
  Weight: 87.08 kg

DRUGS (2)
  1. TIMOLOL MALEATE. [Suspect]
     Active Substance: TIMOLOL MALEATE
     Indication: GLAUCOMA
     Dosage: 1 DROP, 2X/DAY ^EACH EYE^
     Route: 047
     Dates: start: 202004
  2. LATANOPROST (SANDOZ) [Concomitant]
     Active Substance: LATANOPROST

REACTIONS (6)
  - Acoustic neuroma [Unknown]
  - Migraine [Unknown]
  - Therapeutic response unexpected [Not Recovered/Not Resolved]
  - Headache [Recovered/Resolved]
  - Angiopathy [Unknown]
  - Body height decreased [Unknown]

NARRATIVE: CASE EVENT DATE: 202004
